FAERS Safety Report 18949232 (Version 1)
Quarter: 2021Q1

REPORT INFORMATION
  Report Type: Spontaneous
  Country: US (occurrence: US)
  Receive Date: 20210227
  Receipt Date: 20210227
  Transmission Date: 20210420
  Serious: No
  Sender: FDA-Public Use
  Company Number: US-ROCHE-2653439

PATIENT
  Sex: Female

DRUGS (1)
  1. XOLAIR [Suspect]
     Active Substance: OMALIZUMAB
     Indication: ASTHMA
     Dosage: EVERY 4 WEEKS ; THERAPY ONGOING YES
     Route: 058
     Dates: start: 20190508

REACTIONS (2)
  - Weight increased [Unknown]
  - Swelling [Unknown]
